FAERS Safety Report 7275804-0 (Version None)
Quarter: 2011Q1

REPORT INFORMATION
  Report Type: 
  Country: None (occurrence: None)
  Receive Date: 20110204
  Receipt Date: 20110124
  Transmission Date: 20110831
  Serious: Yes (Death)
  Sender: FDA-Public Use
  Company Number: DE-WATSON-2010-16750

PATIENT
  Age: 78 Year
  Sex: Male

DRUGS (12)
  1. RISPERDAL [Suspect]
     Indication: PRODUCT USED FOR UNKNOWN INDICATION
     Dosage: 0.5 MG, DAILY
     Route: 048
     Dates: start: 20100512, end: 20100515
  2. ACETYLSALICYLIC ACID [Concomitant]
     Indication: PRODUCT USED FOR UNKNOWN INDICATION
     Dosage: 100 MG, DAILY
     Route: 048
     Dates: end: 20100530
  3. JONOSTERIL                         /00351401/ [Concomitant]
     Indication: PRODUCT USED FOR UNKNOWN INDICATION
     Dosage: UNK
     Route: 048
     Dates: end: 20100530
  4. SERTRALINE HYDROCHLORIDE [Suspect]
     Dosage: 75 MG, DAILY
     Route: 048
     Dates: start: 20100519, end: 20100526
  5. RISPERDAL [Suspect]
     Dosage: 1 MG, DAILY
     Route: 048
     Dates: start: 20100516, end: 20100517
  6. RISPERDAL [Suspect]
     Dosage: 2 MG, DAILY
     Route: 048
     Dates: start: 20100518, end: 20100530
  7. TOREM                              /01036501/ [Concomitant]
     Indication: PRODUCT USED FOR UNKNOWN INDICATION
     Dosage: 5 MG, DAILY
     Route: 048
     Dates: end: 20100530
  8. INSULIN [Concomitant]
     Indication: PRODUCT USED FOR UNKNOWN INDICATION
     Dosage: UNK
     Route: 048
     Dates: end: 20100530
  9. SERTRALINE HYDROCHLORIDE [Suspect]
     Indication: PRODUCT USED FOR UNKNOWN INDICATION
     Dosage: 100 MG, DAILY
     Route: 048
     Dates: start: 20100527, end: 20100530
  10. SIMVASTATIN [Concomitant]
     Indication: PRODUCT USED FOR UNKNOWN INDICATION
     Dosage: 20 MG, DAILY
     Route: 048
     Dates: end: 20100530
  11. SERTRALINE HYDROCHLORIDE [Suspect]
     Dosage: 50 MG, DAILY
     Route: 048
     Dates: end: 20100518
  12. BISOPROLOL [Concomitant]
     Indication: PRODUCT USED FOR UNKNOWN INDICATION
     Dosage: 5 MG, DAILY
     Route: 048
     Dates: end: 20100530

REACTIONS (1)
  - MYOCARDIAL INFARCTION [None]
